FAERS Safety Report 4672575-9 (Version None)
Quarter: 2005Q2

REPORT INFORMATION
  Report Type: 
  Country: None (occurrence: None)
  Receive Date: 20050524
  Receipt Date: 20050523
  Transmission Date: 20051028
  Serious: Yes (Life-Threatening, Hospitalization, Disabling, Other)
  Sender: FDA-Public Use
  Company Number: US-GLAXOSMITHKLINE-A0559750A

PATIENT
  Age: 41 Year
  Sex: Male

DRUGS (6)
  1. ESKALITH [Suspect]
     Indication: BIPOLAR DISORDER
     Dosage: 450MG TWICE PER DAY
     Route: 048
     Dates: start: 20050101
  2. PAXIL [Suspect]
     Indication: MENTAL DISORDER
     Dosage: 20MG PER DAY
     Route: 048
     Dates: start: 19960101, end: 20050101
  3. WELLBUTRIN XL [Suspect]
     Indication: DEPRESSION
     Dosage: 150MG PER DAY
     Route: 048
     Dates: start: 20050101
  4. SEROQUEL [Suspect]
     Indication: MENTAL DISORDER
     Route: 065
     Dates: start: 20050101
  5. RISPERDAL [Concomitant]
  6. KLONOPIN [Concomitant]

REACTIONS (6)
  - ANGER [None]
  - CRYING [None]
  - DEPRESSION [None]
  - POISONING [None]
  - PSYCHOTIC DISORDER [None]
  - SUICIDE ATTEMPT [None]
